FAERS Safety Report 6768813-9 (Version None)
Quarter: 2010Q2

REPORT INFORMATION
  Report Type: 
  Country: None (occurrence: None)
  Receive Date: 20100611
  Receipt Date: 20100604
  Transmission Date: 20101027
  Serious: Yes (Hospitalization)
  Sender: FDA-Public Use
  Company Number: WAES 1005USA00428

PATIENT
  Age: 46 Year
  Sex: Male
  Weight: 99.7913 kg

DRUGS (7)
  1. DECADRON [Suspect]
     Indication: BRAIN OEDEMA
     Dosage: 4 MG/BID/PO
     Route: 048
     Dates: start: 20091201
  2. CAP MK-0752 UNK [Suspect]
     Indication: GLIOBLASTOMA
     Dosage: 3200 MG/WKY/PO
     Route: 048
     Dates: start: 20100105, end: 20100119
  3. KLONOPIN [Concomitant]
  4. LAMICTAL [Concomitant]
  5. ZOLOFT [Concomitant]
  6. ZONEGRAN [Concomitant]
  7. ZONISAMIDE [Concomitant]

REACTIONS (13)
  - ABNORMAL BEHAVIOUR [None]
  - AGITATION [None]
  - ANXIETY [None]
  - BONE GRAFT LYSIS [None]
  - BRAIN ABSCESS [None]
  - DEPRESSION [None]
  - FLUCTUANCE [None]
  - MENINGEAL DISORDER [None]
  - MENTAL DISORDER [None]
  - POSTOPERATIVE WOUND INFECTION [None]
  - STAPHYLOCOCCAL INFECTION [None]
  - SUICIDAL IDEATION [None]
  - WOUND DEHISCENCE [None]
